FAERS Safety Report 12557078 (Version 1)
Quarter: 2016Q3

REPORT INFORMATION
  Report Type: Spontaneous
  Country: US (occurrence: US)
  Receive Date: 20160714
  Receipt Date: 20160714
  Transmission Date: 20161109
  Serious: No
  Sender: FDA-Public Use
  Company Number: US-ALEXION-A201602603

PATIENT

DRUGS (1)
  1. STRENSIQ [Suspect]
     Active Substance: ASFOTASE ALFA
     Indication: HYPOPHOSPHATASIA
     Route: 058

REACTIONS (5)
  - Injection site discolouration [Unknown]
  - Insomnia [Unknown]
  - Injection site pain [Unknown]
  - Injection site swelling [Unknown]
  - Injection site reaction [Unknown]
